FAERS Safety Report 8160105-9 (Version None)
Quarter: 2012Q1

REPORT INFORMATION
  Report Type: 
  Country: None (occurrence: None)
  Receive Date: 20120223
  Receipt Date: 20120209
  Transmission Date: 20120608
  Serious: Yes (Other)
  Sender: FDA-Public Use
  Company Number: US-PFIZER INC-2012042990

PATIENT
  Age: 8 Year
  Sex: Female

DRUGS (1)
  1. CHILDREN'S MOTRIN [Suspect]
     Indication: MYALGIA
     Dosage: 100 MG ONCE
     Route: 048

REACTIONS (4)
  - SWELLING [None]
  - SWELLING FACE [None]
  - OEDEMA MOUTH [None]
  - ERYTHEMA [None]
